FAERS Safety Report 26077309 (Version 1)
Quarter: 2025Q4

REPORT INFORMATION
  Report Type: Report from Study
  Country: US (occurrence: US)
  Receive Date: 20251121
  Receipt Date: 20251121
  Transmission Date: 20260118
  Serious: Yes (Hospitalization, Other)
  Sender: GILEAD
  Company Number: US-GILEAD-2025-0737578

PATIENT
  Age: 62 Year
  Sex: Female

DRUGS (2)
  1. AZTREONAM LYSINE [Suspect]
     Active Substance: AZTREONAM LYSINE
     Indication: Cystic fibrosis lung
     Dosage: 75MG 3 TIMES A DAY
     Route: 065
     Dates: start: 202202
  2. TRIKAFTA [Concomitant]
     Active Substance: ELEXACAFTOR\IVACAFTOR\TEZACAFTOR
     Dosage: TAKE 2 ORANGE TABLETS BY MOUTH IN THE MORNING WITH BREAKFAST AND 1 LIGHT BLUE TABLET IN THE EVENING
     Route: 048

REACTIONS (1)
  - Cystic fibrosis lung [Unknown]
